APPROVED DRUG PRODUCT: TETRACYCLINE HYDROCHLORIDE
Active Ingredient: TETRACYCLINE HYDROCHLORIDE
Strength: 500MG
Dosage Form/Route: CAPSULE;ORAL
Application: A060469 | Product #003
Applicant: IMPAX LABORATORIES INC
Approved: Approved Prior to Jan 1, 1982 | RLD: No | RS: No | Type: DISCN